FAERS Safety Report 5076047-1 (Version None)
Quarter: 2006Q3

REPORT INFORMATION
  Report Type: 
  Country: None (occurrence: None)
  Receive Date: 20060725
  Receipt Date: 20060329
  Transmission Date: 20061208
  Serious: No
  Sender: FDA-Public Use
  Company Number: 200612034BWH

PATIENT
  Age: 77 Year
  Sex: Male

DRUGS (4)
  1. NEXAVAR [Suspect]
     Indication: RENAL CELL CARCINOMA STAGE UNSPECIFIED
     Dosage: 400 MG, BID, ORAL
     Route: 048
     Dates: start: 20060317
  2. TRIAMTERENE AND HYDROCHLOROTHIAZIDEE [Concomitant]
  3. AMITRYPTYLINE [Concomitant]
  4. SHOT [Concomitant]

REACTIONS (6)
  - ERYTHEMA [None]
  - FATIGUE [None]
  - FEELING ABNORMAL [None]
  - PAIN IN EXTREMITY [None]
  - RASH [None]
  - RASH ERYTHEMATOUS [None]
